FAERS Safety Report 5085456-6 (Version None)
Quarter: 2006Q3

REPORT INFORMATION
  Report Type: 
  Country: None (occurrence: None)
  Receive Date: 20060816
  Receipt Date: 20060731
  Transmission Date: 20061208
  Serious: Yes (Life-Threatening)
  Sender: FDA-Public Use
  Company Number: 2006JP001683

PATIENT
  Age: 63 Year
  Sex: Male
  Weight: 59 kg

DRUGS (15)
  1. PROGRAF [Suspect]
     Dosage: 0.5 MG, UID/QD, ORAL
     Route: 048
     Dates: start: 20060519, end: 20060529
  2. TAKEPRON (LANSOPRAZOLE) ORODISPERSABLE CR TABLET [Suspect]
     Dosage: 15 MG, BID, ORAL
     Route: 048
     Dates: start: 20060522, end: 20060530
  3. GASTER D [Concomitant]
  4. DORNER (BERAPROST SODIUM) [Concomitant]
  5. BLOPRESS (CANDESARTAN CILEXETIL) [Concomitant]
  6. ENALAPRIL MALEATE [Concomitant]
  7. CALONAL [Concomitant]
  8. TANATRIL (IMIDAPRIL HYDROCHLORIDE) [Concomitant]
  9. MAGNESIUM OXIDE [Concomitant]
  10. CLARITHROMYCIN [Concomitant]
  11. TEGRETOL [Concomitant]
  12. MEROPEN (MEROPENEM) [Concomitant]
  13. ZOLPIDEM TARTRATE [Concomitant]
  14. CEFAZOLIN SODIUM [Concomitant]
  15. PLASMA, FRESH FROZEN (PLASMA) [Concomitant]

REACTIONS (14)
  - ABDOMINAL DISTENSION [None]
  - BRAIN OEDEMA [None]
  - CARDIOMEGALY [None]
  - COMA [None]
  - CONVULSION [None]
  - DRUG INTERACTION [None]
  - DRUG LEVEL INCREASED [None]
  - DYSPNOEA [None]
  - FEELING ABNORMAL [None]
  - GASTRIC ULCER [None]
  - HEADACHE [None]
  - IRRITABILITY [None]
  - METABOLIC ENCEPHALOPATHY [None]
  - PYREXIA [None]
